FAERS Safety Report 9537121 (Version 1)
Quarter: 2013Q3

REPORT INFORMATION
  Report Type: Spontaneous
  Country: PT (occurrence: PT)
  Receive Date: 20130919
  Receipt Date: 20130919
  Transmission Date: 20140515
  Serious: Yes (Death, Other)
  Sender: FDA-Public Use
  Company Number: PT-CELGENEUS-130-21880-12111451

PATIENT
  Sex: 0

DRUGS (4)
  1. REVLIMID [Suspect]
     Indication: PLASMA CELL MYELOMA
     Dosage: 5-25
     Route: 048
     Dates: start: 200803, end: 201209
  2. REVLIMID [Suspect]
     Dosage: 5-25
     Route: 048
     Dates: start: 200805, end: 201304
  3. DEXAMETHASONE [Concomitant]
     Indication: PLASMA CELL MYELOMA
     Route: 065
     Dates: start: 200803, end: 201209
  4. DEXAMETHASONE [Concomitant]
     Route: 065
     Dates: start: 200805, end: 201304

REACTIONS (13)
  - Prostate cancer [Unknown]
  - Septic shock [Fatal]
  - Pneumonia [Fatal]
  - Neutropenia [Unknown]
  - Deep vein thrombosis [Unknown]
  - Pulmonary embolism [Unknown]
  - Infection [Unknown]
  - Anaemia [Unknown]
  - Thrombocytopenia [Unknown]
  - Fatigue [Unknown]
  - Plasma cell myeloma [Unknown]
  - Haematotoxicity [Unknown]
  - Neuropathy peripheral [Unknown]
